FAERS Safety Report 20115137 (Version 6)
Quarter: 2023Q1

REPORT INFORMATION
  Report Type: Report from Study
  Country: CO (occurrence: CO)
  Receive Date: 20211125
  Receipt Date: 20230307
  Transmission Date: 20230417
  Serious: Yes (Hospitalization, Other)
  Sender: FDA-Public Use
  Company Number: CO-ABBVIE-21K-036-4175577-00

PATIENT
  Age: 45 Year
  Sex: Female
  Weight: 40 kg

DRUGS (3)
  1. ZEMPLAR [Suspect]
     Active Substance: PARICALCITOL
     Indication: Hyperparathyroidism secondary
     Dosage: FORM STRENGTH: 5 MICROGRAM
     Route: 042
     Dates: start: 20160120, end: 20221128
  2. ZEMPLAR [Suspect]
     Active Substance: PARICALCITOL
     Indication: Hyperparathyroidism secondary
     Dosage: FIRST ADMIN DATE: 2022
     Route: 042
  3. METRONIDAZOLE [Concomitant]
     Active Substance: METRONIDAZOLE
     Indication: Product used for unknown indication
     Dosage: UNKNOWN
     Route: 042
     Dates: start: 20230209, end: 20230215

REACTIONS (13)
  - Renal cyst [Recovering/Resolving]
  - Abdominal pain lower [Recovering/Resolving]
  - Weight decreased [Recovering/Resolving]
  - Polycystic liver disease [Recovering/Resolving]
  - Liver disorder [Not Recovered/Not Resolved]
  - Gastrointestinal disorder [Recovering/Resolving]
  - Kidney enlargement [Recovering/Resolving]
  - Asthenia [Recovering/Resolving]
  - Infection [Recovering/Resolving]
  - Pancreatitis [Recovering/Resolving]
  - Hepatomegaly [Recovering/Resolving]
  - Ascites [Recovering/Resolving]
  - Hepatic cyst ruptured [Recovering/Resolving]

NARRATIVE: CASE EVENT DATE: 20211113
